FAERS Safety Report 6139159-7 (Version None)
Quarter: 2009Q2

REPORT INFORMATION
  Report Type: 
  Country: None (occurrence: None)
  Receive Date: 20090401
  Receipt Date: 20090319
  Transmission Date: 20091009
  Serious: Yes (Hospitalization, Disabling, Other)
  Sender: FDA-Public Use
  Company Number: NL-PFIZER INC-2008154078

PATIENT

DRUGS (9)
  1. DOSTINEX [Suspect]
     Indication: PITUITARY TUMOUR
     Dosage: UNK
     Route: 048
     Dates: start: 20030828, end: 20080903
  2. DOSTINEX [Suspect]
     Indication: PROLACTINOMA
  3. VALSARTAN [Concomitant]
     Dosage: UNK
     Route: 048
     Dates: start: 20040101
  4. LASIX [Concomitant]
     Dosage: UNK
     Route: 048
     Dates: start: 20050527
  5. SINTROM [Concomitant]
     Dosage: UNK
     Dates: start: 20050527
  6. ALDACTONE [Concomitant]
     Dosage: UNK
     Route: 048
     Dates: start: 20050527
  7. CASODEX [Concomitant]
     Dosage: UNK
     Route: 048
     Dates: start: 20061201
  8. SIBELIUM [Concomitant]
     Dosage: UNK
     Route: 048
     Dates: start: 19970819
  9. ZOCOR [Concomitant]
     Dosage: UNK
     Route: 048
     Dates: start: 20050527

REACTIONS (6)
  - ARRHYTHMIA [None]
  - CARDIAC VALVE DISEASE [None]
  - CEREBROVASCULAR ACCIDENT [None]
  - FACIAL PARESIS [None]
  - MITRAL VALVE INCOMPETENCE [None]
  - OSTEOARTHRITIS [None]
